FAERS Safety Report 25037050 (Version 2)
Quarter: 2025Q4

REPORT INFORMATION
  Report Type: Spontaneous
  Country: EU (occurrence: EU)
  Receive Date: 20250304
  Receipt Date: 20251117
  Transmission Date: 20260118
  Serious: Yes (Hospitalization, Other)
  Sender: SANDOZ
  Company Number: EU-FAMHP-DHH-N2025-123746

PATIENT
  Sex: Female

DRUGS (2)
  1. ALPRAZOLAM [Suspect]
     Active Substance: ALPRAZOLAM
     Indication: Intentional self-injury
     Dosage: UNK, SINGLE
     Route: 048
     Dates: start: 20240309
  2. ACETAMINOPHEN [Suspect]
     Active Substance: ACETAMINOPHEN
     Indication: Intentional self-injury
     Dosage: 6.00 PILLS, ONCE
     Route: 048
     Dates: start: 20240309

REACTIONS (2)
  - Somnolence [Unknown]
  - Intentional overdose [Unknown]
